FAERS Safety Report 8499423-3 (Version None)
Quarter: 2012Q3

REPORT INFORMATION
  Report Type: 
  Country: None (occurrence: None)
  Receive Date: 20120710
  Receipt Date: 20120628
  Transmission Date: 20120928
  Serious: Yes (Other)
  Sender: FDA-Public Use
  Company Number: JP-VERTEX PHARMACEUTICALS INC.-AE-2012-009772

PATIENT
  Age: 63 Year
  Sex: Female

DRUGS (7)
  1. RIBAVIRIN [Concomitant]
     Indication: HEPATITIS C
     Route: 048
     Dates: start: 20120510
  2. PEG-INTRON [Concomitant]
     Indication: HEPATITIS C
     Route: 058
     Dates: start: 20120510, end: 20120516
  3. TELAVIC (TELAPREVIR) [Suspect]
     Indication: HEPATITIS C
     Route: 048
     Dates: start: 20120510
  4. LOXOPROFEN SODIUM HYDRATE [Concomitant]
     Route: 048
     Dates: start: 20120510, end: 20120512
  5. MUCOSTA [Concomitant]
     Route: 048
     Dates: start: 20120510, end: 20120512
  6. PEG-INTRON [Concomitant]
     Route: 058
     Dates: start: 20120517
  7. MAGNESIUM OXIDE [Concomitant]
     Route: 048
     Dates: start: 20120511, end: 20120523

REACTIONS (1)
  - WHITE BLOOD CELL COUNT DECREASED [None]
